FAERS Safety Report 16115045 (Version 1)
Quarter: 2019Q1

REPORT INFORMATION
  Report Type: Spontaneous
  Country: US (occurrence: US)
  Receive Date: 20190325
  Receipt Date: 20190325
  Transmission Date: 20190418
  Serious: No
  Sender: FDA-Public Use
  Company Number: US-SMITH AND NEPHEW, INC-2018SMT00156

PATIENT
  Age: 70 Year
  Sex: Female
  Weight: 53.52 kg

DRUGS (5)
  1. ANORO ELLIPTA [Concomitant]
     Active Substance: UMECLIDINIUM BROMIDE\VILANTEROL TRIFENATATE
  2. LOSARTAN POTASSIUM. [Concomitant]
     Active Substance: LOSARTAN POTASSIUM
     Dosage: UNK, 1X/DAY IN THE MORNING
  3. COLLAGENASE SANTYL [Suspect]
     Active Substance: COLLAGENASE CLOSTRIDIUM HISTOLYTICUM
     Dosage: PEA SIZE AMOUNT OF 250 UNIT PER GRAM, 2X/DAY
     Dates: start: 2018, end: 20181105
  4. AMLODIPINE [Concomitant]
     Active Substance: AMLODIPINE BESYLATE
     Dosage: UNK UNK, 1X/DAY AT NIGHT
  5. COLLAGENASE SANTYL [Suspect]
     Active Substance: COLLAGENASE CLOSTRIDIUM HISTOLYTICUM
     Indication: SKIN LESION
     Dosage: DIME SIZE AMOUNT OF 250 UNIT PER GRAM, 2X/DAY
     Dates: start: 201810, end: 2018

REACTIONS (7)
  - Sleep disorder [Not Recovered/Not Resolved]
  - Wound complication [Not Recovered/Not Resolved]
  - Application site pain [Not Recovered/Not Resolved]
  - Application site erythema [Not Recovered/Not Resolved]
  - Product administered at inappropriate site [Not Recovered/Not Resolved]
  - Blood potassium increased [Not Recovered/Not Resolved]
  - Peripheral swelling [Not Recovered/Not Resolved]

NARRATIVE: CASE EVENT DATE: 2018
